FAERS Safety Report 5285332-X (Version None)
Quarter: 2007Q2

REPORT INFORMATION
  Report Type: 
  Country: None (occurrence: None)
  Receive Date: 20070403
  Receipt Date: 20070322
  Transmission Date: 20071010
  Serious: Yes (Hospitalization)
  Sender: FDA-Public Use
  Company Number: FR-PFIZER INC-2007023996

PATIENT
  Sex: Female
  Weight: 63 kg

DRUGS (1)
  1. SU-011,248 [Suspect]
     Route: 048
     Dates: start: 20070109, end: 20070206

REACTIONS (1)
  - ADRENAL CORTICAL INSUFFICIENCY [None]
